FAERS Safety Report 15598257 (Version 1)
Quarter: 2018Q4

REPORT INFORMATION
  Report Type: Spontaneous
  Country: US (occurrence: US)
  Receive Date: 20181108
  Receipt Date: 20181108
  Transmission Date: 20190205
  Serious: No
  Sender: FDA-Public Use
  Company Number: US-ALLERGAN-1811016US

PATIENT
  Age: 76 Year
  Sex: Male

DRUGS (2)
  1. METOPROLOL. [Concomitant]
     Active Substance: METOPROLOL
     Indication: BLOOD PRESSURE MEASUREMENT
     Dosage: UNK
     Route: 065
  2. RAPAFLO [Suspect]
     Active Substance: SILODOSIN
     Indication: DYSURIA
     Dosage: 8 MG, QOD
     Dates: start: 20180107, end: 20180214

REACTIONS (5)
  - Product dose omission [Unknown]
  - Groin pain [Unknown]
  - Dysuria [Unknown]
  - Expired product administered [Unknown]
  - Inappropriate schedule of product administration [Unknown]
